FAERS Safety Report 9327484 (Version 1)
Quarter: 2013Q2

REPORT INFORMATION
  Report Type: Spontaneous
  Country: US (occurrence: US)
  Receive Date: 20130604
  Receipt Date: 20130604
  Transmission Date: 20140414
  Serious: No
  Sender: FDA-Public Use
  Company Number: US-AMGEN-USASP2013033608

PATIENT
  Age: 57 Year
  Sex: Male

DRUGS (1)
  1. ENBREL [Suspect]
     Indication: PSORIASIS
     Dosage: 50 MG, 2 TIMES/WK
     Route: 065
     Dates: start: 20130318

REACTIONS (4)
  - Influenza like illness [Recovered/Resolved]
  - Gait disturbance [Recovered/Resolved]
  - Salivary hypersecretion [Not Recovered/Not Resolved]
  - Injection site anaesthesia [Recovered/Resolved]
